FAERS Safety Report 8927765 (Version 1)
Quarter: 2012Q4

REPORT INFORMATION
  Report Type: 
  Country: US (occurrence: US)
  Receive Date: 20121126
  Receipt Date: 20121126
  Transmission Date: 20130627
  Serious: Yes (Other)
  Sender: FDA-Public Use
  Company Number: US-ASTRAZENECA-2012SE86270

PATIENT
  Age: 80 Year
  Sex: Female
  Weight: 81.6 kg

DRUGS (10)
  1. SYMBICORT [Suspect]
     Indication: ASTHMA
     Dosage: 80/4.5 2 PUFFS BID
     Route: 055
     Dates: start: 20121002, end: 201210
  2. SYMBICORT [Suspect]
     Indication: CHRONIC OBSTRUCTIVE PULMONARY DISEASE
     Dosage: 80/4.5 2 PUFFS BID
     Route: 055
     Dates: start: 20121002, end: 201210
  3. PREDNISOLON [Suspect]
     Route: 065
  4. VERAPAMIL [Concomitant]
     Indication: BLOOD PRESSURE ABNORMAL
     Route: 048
  5. LOSARTAN HCTZ [Concomitant]
     Indication: BLOOD PRESSURE ABNORMAL
  6. LOSARTAN HCTZ [Concomitant]
     Indication: BLOOD PRESSURE ABNORMAL
  7. LEVOTHYROXINE [Concomitant]
     Indication: HYPOTHYROIDISM
  8. INSULIN [Concomitant]
     Indication: DIABETES MELLITUS
     Dosage: 42 UNITS, DAILY
     Route: 058
  9. INSULIN [Concomitant]
     Indication: DIABETES MELLITUS
     Dosage: 54 UNITS DAILY
     Route: 058
  10. CIPRO [Concomitant]

REACTIONS (11)
  - Blood glucose increased [Unknown]
  - Stomatitis [Recovering/Resolving]
  - Bronchitis [Recovering/Resolving]
  - Sinusitis [Recovering/Resolving]
  - Malaise [Unknown]
  - Chest discomfort [Unknown]
  - Visual impairment [Unknown]
  - Cough [Recovering/Resolving]
  - Oropharyngeal pain [Recovering/Resolving]
  - Depression [Unknown]
  - Dizziness [Unknown]
